FAERS Safety Report 8165032-9 (Version None)
Quarter: 2012Q1

REPORT INFORMATION
  Report Type: 
  Country: None (occurrence: None)
  Receive Date: 20120227
  Receipt Date: 20120215
  Transmission Date: 20120608
  Serious: No
  Sender: FDA-Public Use
  Company Number: US-BIOGENIDEC-2012BI006172

PATIENT
  Sex: Female

DRUGS (3)
  1. AVONEX [Suspect]
     Indication: MULTIPLE SCLEROSIS
     Route: 030
     Dates: start: 19970119, end: 20020120
  2. AVONEX [Suspect]
     Route: 030
     Dates: start: 20070518, end: 20070101
  3. IBUPROFEN (ADVIL) [Concomitant]
     Indication: PREMEDICATION

REACTIONS (5)
  - INFLUENZA LIKE ILLNESS [None]
  - TREMOR [None]
  - MUSCLE SPASMS [None]
  - VOMITING [None]
  - APHAGIA [None]
